FAERS Safety Report 6390589-8 (Version None)
Quarter: 2009Q4

REPORT INFORMATION
  Report Type: 
  Country: None (occurrence: None)
  Receive Date: 20091006
  Receipt Date: 20090923
  Transmission Date: 20100525
  Serious: No
  Sender: FDA-Public Use
  Company Number: US-B.I. PHARMACEUTICALS,INC./RIDGEFIELD-2009-BP-11282BP

PATIENT
  Sex: Female

DRUGS (3)
  1. ATROVENT HFA [Suspect]
     Indication: EMPHYSEMA
     Dosage: 153 MCG
     Route: 055
  2. ADVAIR DISKUS 100/50 [Suspect]
     Indication: EMPHYSEMA
     Dosage: 1 PUF
     Route: 055
     Dates: start: 20060101
  3. INSULIN [Concomitant]
     Indication: DIABETES MELLITUS
     Dates: start: 19990101

REACTIONS (4)
  - BLOOD CHOLESTEROL INCREASED [None]
  - CONTUSION [None]
  - HYPERTENSION [None]
  - HYPOTHYROIDISM [None]
